FAERS Safety Report 5562199-3 (Version None)
Quarter: 2007Q4

REPORT INFORMATION
  Report Type: 
  Country: None (occurrence: None)
  Receive Date: 20071215
  Receipt Date: 20070927
  Transmission Date: 20080405
  Serious: No
  Sender: FDA-Public Use
  Company Number: US-AMGEN-KDL245191

PATIENT
  Sex: Female

DRUGS (1)
  1. ENBREL [Suspect]
     Indication: ARTHRITIS
     Dates: start: 20070101

REACTIONS (4)
  - GAIT DISTURBANCE [None]
  - INJECTION SITE MASS [None]
  - INJECTION SITE PAIN [None]
  - INJECTION SITE RASH [None]
